FAERS Safety Report 5743476-X (Version None)
Quarter: 2008Q2

REPORT INFORMATION
  Report Type: 
  Country: None (occurrence: None)
  Receive Date: 20080519
  Receipt Date: 20080519
  Transmission Date: 20081010
  Serious: Yes (Other)
  Sender: FDA-Public Use
  Company Number: None

PATIENT
  Age: 72 Year
  Sex: Male
  Weight: 88.4514 kg

DRUGS (1)
  1. DIGITEK 250MAG UDL [Suspect]
     Indication: CARDIAC DISORDER
     Dosage: 0.25 1X DAY PO
     Route: 048
     Dates: start: 20080315, end: 20080501

REACTIONS (6)
  - ASTHENIA [None]
  - FLUID RETENTION [None]
  - HEART RATE DECREASED [None]
  - MALAISE [None]
  - PHARMACEUTICAL PRODUCT COMPLAINT [None]
  - THERAPEUTIC AGENT TOXICITY [None]
